FAERS Safety Report 7324395-4 (Version None)
Quarter: 2011Q1

REPORT INFORMATION
  Report Type: 
  Country: None (occurrence: None)
  Receive Date: 20110301
  Receipt Date: 20110225
  Transmission Date: 20110831
  Serious: No
  Sender: FDA-Public Use
  Company Number: US-PFIZER INC-2011041930

PATIENT
  Sex: Female

DRUGS (1)
  1. ADVIL LIQUI-GELS [Suspect]
     Indication: PAIN IN EXTREMITY
     Dosage: UNK
     Route: 048

REACTIONS (3)
  - PRURITUS [None]
  - PARAESTHESIA ORAL [None]
  - FLUSHING [None]
